FAERS Safety Report 15244086 (Version 1)
Quarter: 2018Q3

REPORT INFORMATION
  Report Type: Spontaneous
  Country: US (occurrence: US)
  Receive Date: 20180712
  Receipt Date: 20180712
  Transmission Date: 20181010
  Serious: Yes (Other)
  Sender: FDA-Public Use
  Company Number: None

PATIENT
  Age: 80 Year
  Sex: Female
  Weight: 63.9 kg

DRUGS (18)
  1. REVLIMID [Concomitant]
     Active Substance: LENALIDOMIDE
  2. DEXAMETHASONE. [Concomitant]
     Active Substance: DEXAMETHASONE
  3. FOLIC ACID. [Concomitant]
     Active Substance: FOLIC ACID
  4. CITRACAL + D3 [Concomitant]
  5. XANAX [Concomitant]
     Active Substance: ALPRAZOLAM
  6. GABAPENTIN. [Concomitant]
     Active Substance: GABAPENTIN
  7. ASPIRIN. [Concomitant]
     Active Substance: ASPIRIN
  8. AMBIEN [Concomitant]
     Active Substance: ZOLPIDEM TARTRATE
  9. TOPROL XL [Concomitant]
     Active Substance: METOPROLOL SUCCINATE
  10. NINLARO [Suspect]
     Active Substance: IXAZOMIB CITRATE
     Indication: PLASMA CELL MYELOMA
     Route: 048
     Dates: start: 20170821
  11. ZOCOR [Concomitant]
     Active Substance: SIMVASTATIN
  12. ACYCLOVIR. [Concomitant]
     Active Substance: ACYCLOVIR
  13. LISINOPRIL. [Concomitant]
     Active Substance: LISINOPRIL
  14. REFRESH LIQUIGEL [Concomitant]
     Active Substance: CARBOXYMETHYLCELLULOSE SODIUM
  15. WELCHOL [Concomitant]
     Active Substance: COLESEVELAM HYDROCHLORIDE
  16. ZOMETA [Concomitant]
     Active Substance: ZOLEDRONIC ACID
  17. PRECOSE [Concomitant]
     Active Substance: ACARBOSE
  18. OMEPRAZOLE. [Concomitant]
     Active Substance: OMEPRAZOLE

REACTIONS (2)
  - Nausea [None]
  - Vomiting [None]
